FAERS Safety Report 25224512 (Version 7)
Quarter: 2025Q3

REPORT INFORMATION
  Report Type: Report from Study
  Country: CA (occurrence: CA)
  Receive Date: 20250422
  Receipt Date: 20250810
  Transmission Date: 20251020
  Serious: Yes (Other)
  Sender: ALEXION PHARMACEUTICALS
  Company Number: CA-AstraZeneca-CH-00850139A

PATIENT
  Age: 85 Year
  Sex: Female
  Weight: 74.376 kg

DRUGS (10)
  1. CAPIVASERTIB [Suspect]
     Active Substance: CAPIVASERTIB
     Indication: Breast cancer metastatic
     Dosage: 400 MILLIGRAM, BID
     Dates: start: 20250403
  2. CAPIVASERTIB [Suspect]
     Active Substance: CAPIVASERTIB
     Dosage: 400 MILLIGRAM, BID
     Route: 065
     Dates: start: 20250403
  3. FASLODEX [Suspect]
     Active Substance: FULVESTRANT
     Indication: Breast cancer female
     Dosage: 500 MILLIGRAM, Q2W
     Dates: start: 20250403
  4. FASLODEX [Suspect]
     Active Substance: FULVESTRANT
  5. RAMIPRIL [Concomitant]
     Active Substance: RAMIPRIL
  6. NIFEDIPINE [Concomitant]
     Active Substance: NIFEDIPINE
  7. ATORVASTATIN [Concomitant]
     Active Substance: ATORVASTATIN
  8. METFORMIN [Concomitant]
     Active Substance: METFORMIN HYDROCHLORIDE
     Indication: Type 2 diabetes mellitus
     Dosage: 500 MILLIGRAM, BID
     Dates: start: 20250414
  9. METFORMIN [Concomitant]
     Active Substance: METFORMIN HYDROCHLORIDE
     Dosage: 1000 MILLIGRAM, BID
     Route: 065
     Dates: start: 20250414
  10. ESTROGENS [Concomitant]
     Active Substance: ESTROGENS
     Route: 065

REACTIONS (8)
  - Type 2 diabetes mellitus [Unknown]
  - Blood glucose increased [Recovering/Resolving]
  - Rash [Recovering/Resolving]
  - Diarrhoea [Recovered/Resolved]
  - Retching [Unknown]
  - Pruritus [Recovering/Resolving]
  - Faeces soft [Recovered/Resolved]
  - Blood test abnormal [Unknown]
